FAERS Safety Report 13069315 (Version 1)
Quarter: 2016Q4

REPORT INFORMATION
  Report Type: Spontaneous
  Country: US (occurrence: US)
  Receive Date: 20161228
  Receipt Date: 20161228
  Transmission Date: 20170207
  Serious: Yes (Other)
  Sender: FDA-Public Use
  Company Number: US-SA-2016SA231075

PATIENT
  Age: 57 Year
  Sex: Female

DRUGS (4)
  1. LANTUS SOLOSTAR [Suspect]
     Active Substance: INSULIN GLARGINE
     Indication: DIABETES MELLITUS
     Dosage: DOSE:25 UNIT(S)
     Route: 065
  2. SOLOSTAR [Concomitant]
     Active Substance: DEVICE
  3. LANTUS SOLOSTAR [Suspect]
     Active Substance: INSULIN GLARGINE
     Indication: DIABETES MELLITUS
     Dosage: DOSE: 21-25 UNITS DOSE:21 UNIT(S)
     Route: 065
     Dates: end: 2016
  4. SOLOSTAR [Concomitant]
     Active Substance: DEVICE

REACTIONS (5)
  - Nervousness [Unknown]
  - Blood glucose increased [Unknown]
  - Blindness unilateral [Unknown]
  - Feeling hot [Unknown]
  - Hyperhidrosis [Unknown]
